FAERS Safety Report 9867487 (Version 1)
Quarter: 2014Q1

REPORT INFORMATION
  Report Type: Spontaneous
  Country: US (occurrence: US)
  Receive Date: 20140204
  Receipt Date: 20140204
  Transmission Date: 20141002
  Serious: Yes (Death)
  Sender: FDA-Public Use
  Company Number: US-SANOFI-AVENTIS-2013SA082648

PATIENT
  Age: 49 Year
  Sex: Female

DRUGS (4)
  1. AMBIEN [Suspect]
     Route: 065
  2. CYMBALTA [Concomitant]
  3. XANAX [Concomitant]
  4. NEURONTIN [Concomitant]

REACTIONS (2)
  - Death [Fatal]
  - Drug ineffective [Unknown]
